FAERS Safety Report 9745766 (Version 1)
Quarter: 2013Q4

REPORT INFORMATION
  Report Type: Spontaneous
  Country: GB (occurrence: GB)
  Receive Date: 20131211
  Receipt Date: 20131211
  Transmission Date: 20140711
  Serious: Yes (Hospitalization, Other)
  Sender: FDA-Public Use
  Company Number: GB-B.I. PHARMACEUTICALS,INC./RIDGEFIELD-2013-BI-40818UK

PATIENT
  Age: 75 Year
  Sex: Female

DRUGS (6)
  1. PRADAXA [Suspect]
     Dosage: 300 MG
     Route: 048
     Dates: start: 20131120, end: 20131120
  2. AMLODIPINE [Concomitant]
     Route: 048
  3. ASPIRIN [Concomitant]
     Route: 048
  4. ATORVASTATIN [Concomitant]
     Route: 048
  5. CITALOPRAM [Concomitant]
     Route: 048
  6. PERINDOPRIL [Concomitant]
     Route: 048

REACTIONS (4)
  - Angioedema [Recovered/Resolved]
  - Pruritus [Recovered/Resolved]
  - Dyspnoea [Recovered/Resolved]
  - Urticaria [Recovered/Resolved]
